FAERS Safety Report 7897175-9 (Version None)
Quarter: 2011Q4

REPORT INFORMATION
  Report Type: 
  Country: None (occurrence: None)
  Receive Date: 20111107
  Receipt Date: 20111024
  Transmission Date: 20120403
  Serious: Yes (Death, Other)
  Sender: FDA-Public Use
  Company Number: CA-ELI_LILLY_AND_COMPANY-CA201110006123

PATIENT
  Sex: Male

DRUGS (4)
  1. HALOPERIDOL [Concomitant]
  2. STELAZINE [Concomitant]
  3. CHLORPROMAZINE [Concomitant]
  4. ZYPREXA [Suspect]
     Indication: SCHIZOPHRENIA
     Dosage: 1 UNK, UNK
     Dates: start: 19970101, end: 20030806

REACTIONS (4)
  - ARTERIAL OCCLUSIVE DISEASE [None]
  - NEOPLASM MALIGNANT [None]
  - DEATH [None]
  - DIABETES MELLITUS [None]
